FAERS Safety Report 10388573 (Version 3)
Quarter: 2014Q4

REPORT INFORMATION
  Report Type: Spontaneous
  Country: CO (occurrence: CO)
  Receive Date: 20140815
  Receipt Date: 20141021
  Transmission Date: 20150528
  Serious: Yes (Hospitalization)
  Sender: FDA-Public Use
  Company Number: CO-PFIZER INC-2014212253

PATIENT
  Age: 5 Year
  Sex: Female

DRUGS (5)
  1. GENOTROPIN [Suspect]
     Active Substance: SOMATROPIN
     Indication: TURNER^S SYNDROME
     Dosage: 0.8 MG, 1X/DAY
     Route: 058
     Dates: start: 20140727
  2. ESOMEPRAZOLE [Concomitant]
     Active Substance: ESOMEPRAZOLE
     Dosage: 10 MG, DAILY
     Route: 048
  3. MONTELUKAST [Concomitant]
     Active Substance: MONTELUKAST SODIUM
     Dosage: 1 DF, DAILY
     Route: 048
  4. SULTAMICILLIN [Concomitant]
     Active Substance: SULTAMICILLIN
     Indication: INFECTION
     Dosage: 10 ML, 3X/DAY (EVERY 8 HOURS)
     Route: 048
     Dates: start: 20140727
  5. DOMPERIDONE [Concomitant]
     Active Substance: DOMPERIDONE
     Dosage: 5 ML, DAILY
     Route: 048

REACTIONS (2)
  - Pyrexia [Not Recovered/Not Resolved]
  - Infection [Not Recovered/Not Resolved]

NARRATIVE: CASE EVENT DATE: 201407
